FAERS Safety Report 6524195-9 (Version None)
Quarter: 2009Q4

REPORT INFORMATION
  Report Type: 
  Country: None (occurrence: None)
  Receive Date: 20091230
  Receipt Date: 20091230
  Transmission Date: 20100525
  Serious: No
  Sender: FDA-Public Use
  Company Number: None

PATIENT
  Age: 62 Year
  Sex: Male
  Weight: 113.3993 kg

DRUGS (2)
  1. COLD REMEDY GEL SWABS [Suspect]
     Dosage: ^COUPLE TIMES^-6 MONTHS 2006-AFTER 6 MONTHS
     Dates: start: 20060101
  2. ALLERGY RELIEF NASAL GEL [Suspect]
     Dosage: ^COUPLE TIMES^-6 MONTHS 2006-AFTER 6 MONTHS
     Dates: start: 20060101

REACTIONS (2)
  - HYPOGEUSIA [None]
  - HYPOSMIA [None]
